FAERS Safety Report 13832797 (Version 1)
Quarter: 2017Q3

REPORT INFORMATION
  Report Type: Spontaneous
  Country: US (occurrence: US)
  Receive Date: 20170803
  Receipt Date: 20170803
  Transmission Date: 20171127
  Serious: No
  Sender: FDA-Public Use
  Company Number: None

PATIENT
  Age: 52 Year
  Sex: Female
  Weight: 58.5 kg

DRUGS (1)
  1. RESTASIS [Suspect]
     Active Substance: CYCLOSPORINE
     Indication: DRY EYE
     Dosage: QUANTITY:1 DROP(S);?
     Route: 047
     Dates: start: 20170224, end: 20170307

REACTIONS (10)
  - Fatigue [None]
  - Visual impairment [None]
  - Eye pruritus [None]
  - Blepharospasm [None]
  - Excessive eye blinking [None]
  - Dry eye [None]
  - Vitreous floaters [None]
  - Eye irritation [None]
  - Vision blurred [None]
  - Glare [None]

NARRATIVE: CASE EVENT DATE: 20170224
